FAERS Safety Report 20405035 (Version 1)
Quarter: 2022Q1

REPORT INFORMATION
  Report Type: Spontaneous
  Country: US (occurrence: US)
  Receive Date: 20220131
  Receipt Date: 20220131
  Transmission Date: 20220423
  Serious: No
  Sender: FDA-Public Use
  Company Number: US-NOVARTISTESTPH-NVSC2022US017644

PATIENT
  Sex: Female

DRUGS (1)
  1. LOSARTAN [Suspect]
     Active Substance: LOSARTAN
     Indication: Product used for unknown indication
     Dosage: 50 MG
     Route: 065

REACTIONS (8)
  - Hyperhidrosis [Unknown]
  - Anxiety [Unknown]
  - Dyspepsia [Unknown]
  - Hot flush [Unknown]
  - Peripheral swelling [Unknown]
  - Crying [Unknown]
  - Cold sweat [Unknown]
  - Tongue discomfort [Unknown]
